FAERS Safety Report 6186239-6 (Version None)
Quarter: 2009Q2

REPORT INFORMATION
  Report Type: 
  Country: None (occurrence: None)
  Receive Date: 20090507
  Receipt Date: 20090507
  Transmission Date: 20091009
  Serious: Yes (Hospitalization)
  Sender: FDA-Public Use
  Company Number: None

PATIENT
  Sex: Male
  Weight: 60.5552 kg

DRUGS (2)
  1. SORAFENIB 200 MG [Suspect]
     Indication: PANCREATIC CARCINOMA
     Dosage: 2 TABS PO QOD
     Route: 048
  2. ERLOTINIB 150 MG [Suspect]
     Indication: PANCREATIC CARCINOMA
     Dosage: ONE TAB EVERY DAY

REACTIONS (1)
  - BODY TEMPERATURE INCREASED [None]
